FAERS Safety Report 16643217 (Version 1)
Quarter: 2019Q3

REPORT INFORMATION
  Report Type: Report from Study
  Country: US (occurrence: US)
  Receive Date: 20190729
  Receipt Date: 20190729
  Transmission Date: 20191004
  Serious: Yes (Death, Other)
  Sender: FDA-Public Use
  Company Number: US-ROCHE-2361240

PATIENT

DRUGS (9)
  1. DACLIZUMAB [Suspect]
     Active Substance: DACLIZUMAB
     Indication: PROPHYLAXIS AGAINST TRANSPLANT REJECTION
     Dosage: TOTAL OF FIVE DOSES (GROUP 1)
     Route: 065
     Dates: start: 199803, end: 199912
  2. PREDNISONE. [Suspect]
     Active Substance: PREDNISONE
     Indication: IMMUNOSUPPRESSION
     Route: 065
  3. DACLIZUMAB [Suspect]
     Active Substance: DACLIZUMAB
     Dosage: TWO DOSES ADMINISTERD AS ONE INTRAOPERATIVELY AND ON THE DAY OF DISCHARGE FROM THE HOSPITAL  (GROUP
     Route: 065
     Dates: start: 200012, end: 200204
  4. CYCLOSPORINE. [Suspect]
     Active Substance: CYCLOSPORINE
     Indication: IMMUNOSUPPRESSION
     Route: 065
  5. TACROLIMUS. [Suspect]
     Active Substance: TACROLIMUS
     Indication: IMMUNOSUPPRESSION
     Route: 065
  6. SIROLIMUS. [Suspect]
     Active Substance: SIROLIMUS
     Indication: IMMUNOSUPPRESSION
     Route: 065
  7. MYCOPHENOLATE MOFETIL. [Suspect]
     Active Substance: MYCOPHENOLATE MOFETIL
     Indication: IMMUNOSUPPRESSION
     Route: 065
  8. AZATHIOPRINE. [Suspect]
     Active Substance: AZATHIOPRINE
     Indication: IMMUNOSUPPRESSION
     Route: 065
  9. MUROMONAB CD3 [Concomitant]
     Active Substance: MUROMONAB-CD3

REACTIONS (10)
  - Hepatitis C [Fatal]
  - Cytomegalovirus colitis [Unknown]
  - Squamous cell carcinoma of skin [Unknown]
  - Herpes virus infection [Unknown]
  - Invasive ductal breast carcinoma [Unknown]
  - Pneumonia [Unknown]
  - Pneumonia cytomegaloviral [Unknown]
  - Soft tissue infection [Unknown]
  - Cytomegalovirus infection [Unknown]
  - Sepsis [Fatal]
